FAERS Safety Report 16231931 (Version 2)
Quarter: 2019Q2

REPORT INFORMATION
  Report Type: Spontaneous
  Country: US (occurrence: US)
  Receive Date: 20190424
  Receipt Date: 20190517
  Transmission Date: 20190711
  Serious: Yes (Hospitalization, Other)
  Sender: FDA-Public Use
  Company Number: US-CIPLA LTD.-2019US02334

PATIENT

DRUGS (5)
  1. NADOLOL. [Suspect]
     Active Substance: NADOLOL
     Dosage: 60 MILLIGRAM, BID
     Route: 065
  2. FLECAINIDE [Suspect]
     Active Substance: FLECAINIDE
     Indication: VENTRICULAR TACHYCARDIA
     Dosage: UNK
     Route: 065
  3. NADOLOL. [Suspect]
     Active Substance: NADOLOL
     Dosage: 60 MILLIGRAM, BID (1 MG/KG/DAY)
     Route: 065
  4. FLECAINIDE [Suspect]
     Active Substance: FLECAINIDE
     Dosage: GRADUALLY INCREASED TO 150 MG BID (2.5 MG/KG/DAY) OVER 5 DAYS
     Route: 065
  5. NADOLOL. [Suspect]
     Active Substance: NADOLOL
     Indication: VENTRICULAR TACHYCARDIA
     Dosage: 30 MILLIGRAM, BID (0.5 MG/KG/DAY)
     Route: 065

REACTIONS (6)
  - Ventricular tachycardia [Unknown]
  - Drug resistance [Unknown]
  - Dizziness [Unknown]
  - Drug ineffective [Unknown]
  - Sinus bradycardia [Unknown]
  - Hypotension [Unknown]
